FAERS Safety Report 20914152 (Version 1)
Quarter: 2022Q2

REPORT INFORMATION
  Report Type: Spontaneous
  Country: US (occurrence: US)
  Receive Date: 20220604
  Receipt Date: 20220604
  Transmission Date: 20220721
  Serious: No
  Sender: FDA-Public Use
  Company Number: US-SA-SAC20220520001244

PATIENT
  Age: 42 Year
  Sex: Male

DRUGS (9)
  1. DUPIXENT [Suspect]
     Active Substance: DUPILUMAB
     Indication: Dermatitis atopic
     Route: 058
     Dates: start: 20200828
  2. CLOBETASOL [Concomitant]
     Active Substance: CLOBETASOL
  3. EUCRISA [Concomitant]
     Active Substance: CRISABOROLE
  4. LITHIUM [Concomitant]
     Active Substance: LITHIUM
  5. TOPIRAMATE [Concomitant]
     Active Substance: TOPIRAMATE
  6. TYLENOL [Concomitant]
     Active Substance: ACETAMINOPHEN
  7. GINKGO [Concomitant]
     Active Substance: GINKGO
  8. LEVETIRACETAM [Concomitant]
     Active Substance: LEVETIRACETAM
  9. ST. JOHN^S WORT [Concomitant]
     Active Substance: ST. JOHN^S WORT

REACTIONS (7)
  - Skin fissures [Not Recovered/Not Resolved]
  - Sleep disorder [Not Recovered/Not Resolved]
  - Erythema [Not Recovered/Not Resolved]
  - Dermatitis atopic [Not Recovered/Not Resolved]
  - Rash [Not Recovered/Not Resolved]
  - Condition aggravated [Not Recovered/Not Resolved]
  - Discomfort [Not Recovered/Not Resolved]
